FAERS Safety Report 17507718 (Version 1)
Quarter: 2020Q1

REPORT INFORMATION
  Report Type: Spontaneous
  Country: HU (occurrence: HU)
  Receive Date: 20200306
  Receipt Date: 20200306
  Transmission Date: 20200409
  Serious: Yes (Death, Hospitalization, Other)
  Sender: FDA-Public Use
  Company Number: HU-ABBVIE-20K-076-3263466-00

PATIENT
  Age: 68 Year
  Sex: Male

DRUGS (2)
  1. DUODOPA [Suspect]
     Active Substance: CARBIDOPA\LEVODOPA
     Indication: PARKINSON^S DISEASE
     Dosage: MORNING DOSE:4.5 ML; CONTINUOUS DOSE: 3.5 ML; EXTRA DOSE: 2.0 ML??ML
     Route: 050
     Dates: start: 20140725
  2. QUETIAPINE TEVA [Concomitant]
     Active Substance: QUETIAPINE
     Indication: HALLUCINATION
     Dosage: IN THE EVENING
     Route: 048
     Dates: start: 201612

REACTIONS (4)
  - Pneumonia [Not Recovered/Not Resolved]
  - Decubitus ulcer [Not Recovered/Not Resolved]
  - Death [Fatal]
  - Parkinson^s disease [Not Recovered/Not Resolved]

NARRATIVE: CASE EVENT DATE: 201912
